FAERS Safety Report 6321919-0 (Version None)
Quarter: 2009Q3

REPORT INFORMATION
  Report Type: 
  Country: None (occurrence: None)
  Receive Date: 20090824
  Receipt Date: 20090819
  Transmission Date: 20100115
  Serious: No
  Sender: FDA-Public Use
  Company Number: US-B.I. PHARMACEUTICALS,INC./RIDGEFIELD-2009-BP-09842BP

PATIENT
  Sex: Male

DRUGS (4)
  1. SPIRIVA [Suspect]
     Indication: EMPHYSEMA
     Dosage: 18 MCG
     Route: 055
     Dates: start: 20070101
  2. METOPROLOL [Concomitant]
     Indication: MYOCARDIAL INFARCTION
     Dates: start: 20000101
  3. METOPROLOL [Concomitant]
     Indication: PROPHYLAXIS
  4. LYRICA [Concomitant]
     Indication: IRRITABLE BOWEL SYNDROME
     Dates: start: 20030101

REACTIONS (2)
  - DYSPNOEA [None]
  - PULMONARY CONGESTION [None]
